FAERS Safety Report 8988726 (Version 2)
Quarter: 2013Q3

REPORT INFORMATION
  Report Type: Report from Study
  Country: FR (occurrence: FR)
  Receive Date: 20121228
  Receipt Date: 20130801
  Transmission Date: 20140515
  Serious: Yes (Hospitalization)
  Sender: FDA-Public Use
  Company Number: FR-ROCHE-1170275

PATIENT
  Age: 76 Year
  Sex: Male
  Weight: 57 kg

DRUGS (12)
  1. CYCLOPHOSPHAMIDE [Suspect]
     Indication: CHRONIC LYMPHOCYTIC LEUKAEMIA
     Route: 065
  2. XATRAL [Concomitant]
     Route: 065
  3. AMLOR [Concomitant]
     Route: 065
  4. KARDEGIC [Concomitant]
     Route: 065
  5. LEXOMIL [Concomitant]
     Route: 065
  6. FUMAFER [Concomitant]
     Route: 065
  7. DUROGESIC [Concomitant]
     Dosage: 1 PTCH EVERY 72 HOURS
     Route: 065
  8. BACTRIM [Concomitant]
     Route: 065
  9. ZELITREX [Concomitant]
     Route: 065
  10. SOTALOL [Concomitant]
     Route: 065
  11. RITUXIMAB [Suspect]
     Indication: CHRONIC LYMPHOCYTIC LEUKAEMIA
     Route: 065
     Dates: start: 20081216
  12. FLUDARABINE [Suspect]
     Indication: CHRONIC LYMPHOCYTIC LEUKAEMIA
     Route: 065

REACTIONS (2)
  - General physical condition abnormal [Recovered/Resolved]
  - Anaemia [Recovered/Resolved]
